FAERS Safety Report 23484400 (Version 1)
Quarter: 2024Q1

REPORT INFORMATION
  Report Type: Spontaneous
  Country: CN (occurrence: CN)
  Receive Date: 20240206
  Receipt Date: 20240206
  Transmission Date: 20240410
  Serious: Yes (Death, Hospitalization, Other)
  Sender: FDA-Public Use
  Company Number: CN-UniquePharma-CN-2024UPLLIT00007

PATIENT
  Age: 70 Year
  Sex: Male

DRUGS (3)
  1. VENLAFAXINE [Suspect]
     Active Substance: VENLAFAXINE HYDROCHLORIDE
     Indication: Depression
     Route: 065
  2. FLUVOXAMINE [Concomitant]
     Active Substance: FLUVOXAMINE
     Indication: Depression
     Route: 065
  3. DULOXETINE [Concomitant]
     Active Substance: DULOXETINE
     Indication: Depression
     Route: 065

REACTIONS (1)
  - Interstitial lung disease [Fatal]
